FAERS Safety Report 10907345 (Version 1)
Quarter: 2015Q1

REPORT INFORMATION
  Report Type: Spontaneous
  Country: US (occurrence: None)
  Receive Date: 20150309
  Receipt Date: 20150309
  Transmission Date: 20150721
  Serious: Yes (Disabling)
  Sender: FDA-Public Use
  Company Number: None

PATIENT
  Age: 54 Year
  Sex: Female
  Weight: 64.86 kg

DRUGS (6)
  1. GRAPE SEED [Concomitant]
  2. LEVOFLOXACIN 500 MG ZYDUS [Suspect]
     Active Substance: LEVOFLOXACIN
     Indication: INFECTION
     Dosage: 5 TABLETS ONCE DAILY TAKEN BY MOUTH
     Route: 048
     Dates: start: 20150206, end: 20150210
  3. COQ10 [Concomitant]
     Active Substance: UBIDECARENONE
  4. OMEGA 3 [Concomitant]
     Active Substance: OMEGA-3 FATTY ACIDS
  5. VITAMIN D [Concomitant]
     Active Substance: CHOLECALCIFEROL
  6. CENTRUM [Concomitant]
     Active Substance: VITAMINS

REACTIONS (4)
  - Tension [None]
  - Nervousness [None]
  - Pain [None]
  - Feeling cold [None]

NARRATIVE: CASE EVENT DATE: 20150206
